FAERS Safety Report 16646081 (Version 1)
Quarter: 2019Q3

REPORT INFORMATION
  Report Type: Spontaneous
  Country: US (occurrence: US)
  Receive Date: 20190730
  Receipt Date: 20190730
  Transmission Date: 20191004
  Serious: Yes (Hospitalization, Other)
  Sender: FDA-Public Use
  Company Number: US-ALKEM LABORATORIES LIMITED-US-ALKEM-2019-06806

PATIENT
  Age: 16 Year
  Sex: Female

DRUGS (3)
  1. MINOCYCLINE [Suspect]
     Active Substance: MINOCYCLINE HYDROCHLORIDE
     Indication: ACNE
     Dosage: 100 MILLIGRAM, BID
     Route: 065
  2. FLUTICASONE. [Concomitant]
     Active Substance: FLUTICASONE
     Indication: ASTHMA
     Dosage: 44 MICROGRAM (TWO PUFFS), BID
     Route: 065
  3. ALBUTEROL. [Concomitant]
     Active Substance: ALBUTEROL
     Indication: ASTHMA
     Dosage: 44 MICROGRAM (TWO PUFFS), BID
     Route: 065

REACTIONS (4)
  - Antineutrophil cytoplasmic antibody positive [Recovered/Resolved]
  - Organising pneumonia [Recovered/Resolved]
  - Scleroderma [Recovered/Resolved]
  - Antinuclear antibody positive [Recovered/Resolved]
